FAERS Safety Report 11785189 (Version 1)
Quarter: 2015Q4

REPORT INFORMATION
  Report Type: Spontaneous
  Country: US (occurrence: US)
  Receive Date: 20151130
  Receipt Date: 20151130
  Transmission Date: 20160305
  Serious: No
  Sender: FDA-Public Use
  Company Number: US-PFIZER INC-2015169389

PATIENT
  Age: 55 Year
  Sex: Female
  Weight: 93.44 kg

DRUGS (3)
  1. LYRICA [Suspect]
     Active Substance: PREGABALIN
     Dosage: 150 MG, 2X/DAY (50MG, TAKES 3, TWICE A DAY)
     Route: 048
     Dates: start: 20151102
  2. LYRICA [Suspect]
     Active Substance: PREGABALIN
     Indication: FIBROMYALGIA
     Dosage: 200 MG, 3X/DAY (ONE TAB TID)
     Route: 048
  3. LYRICA [Suspect]
     Active Substance: PREGABALIN
     Dosage: 150 MG ((TWO OF THE 75MG SAMPLES)), 2X/DAY

REACTIONS (2)
  - Product label issue [Unknown]
  - Eye disorder [Unknown]
